FAERS Safety Report 17812242 (Version 1)
Quarter: 2020Q2

REPORT INFORMATION
  Report Type: Spontaneous
  Country: US (occurrence: US)
  Receive Date: 20200521
  Receipt Date: 20200521
  Transmission Date: 20200714
  Serious: No
  Sender: FDA-Public Use
  Company Number: None

PATIENT
  Age: 59 Year
  Sex: Male

DRUGS (10)
  1. ENTRESTO [Concomitant]
     Active Substance: SACUBITRIL\VALSARTAN
  2. LORAZEPAM. [Concomitant]
     Active Substance: LORAZEPAM
  3. VASCEPA [Concomitant]
     Active Substance: ICOSAPENT ETHYL
  4. LAMICTAL [Concomitant]
     Active Substance: LAMOTRIGINE
  5. CARVEDILOL. [Concomitant]
     Active Substance: CARVEDILOL
  6. ZOLPIDEM [Concomitant]
     Active Substance: ZOLPIDEM TARTRATE
  7. SOTALOL. [Concomitant]
     Active Substance: SOTALOL
  8. ATORVASTATIN [Concomitant]
     Active Substance: ATORVASTATIN
  9. BOSULIF [Suspect]
     Active Substance: BOSUTINIB MONOHYDRATE
     Indication: CHRONIC MYELOID LEUKAEMIA
     Route: 048
  10. BRILINTA [Concomitant]
     Active Substance: TICAGRELOR

REACTIONS (3)
  - Dyspnoea [None]
  - Chest pain [None]
  - Tinnitus [None]

NARRATIVE: CASE EVENT DATE: 20200521
